FAERS Safety Report 10238224 (Version 1)
Quarter: 2014Q2

REPORT INFORMATION
  Report Type: Spontaneous
  Country: GB (occurrence: GB)
  Receive Date: 20140616
  Receipt Date: 20140616
  Transmission Date: 20141212
  Serious: Yes (Other)
  Sender: FDA-Public Use
  Company Number: GB-JNJFOC-20140605818

PATIENT
  Age: 80 Year
  Sex: Male
  Weight: 75 kg

DRUGS (5)
  1. XARELTO [Suspect]
     Indication: EMBOLISM VENOUS
     Route: 048
     Dates: start: 20140425, end: 20140527
  2. XARELTO [Suspect]
     Indication: PULMONARY EMBOLISM
     Route: 048
     Dates: start: 20140425, end: 20140527
  3. PARACETAMOL [Concomitant]
     Route: 065
  4. LAXIDO [Concomitant]
     Route: 065
  5. CLEXANE [Concomitant]
     Route: 065

REACTIONS (1)
  - Abdominal pain [Unknown]
